FAERS Safety Report 25527934 (Version 1)
Quarter: 2025Q3

REPORT INFORMATION
  Report Type: Other
  Country: GB (occurrence: GB)
  Receive Date: 20250708
  Receipt Date: 20250708
  Transmission Date: 20251020
  Serious: Yes (Other)
  Sender: GLENMARK
  Company Number: GB-MHRA-TPP24474942C9987576YC1750768438216

PATIENT
  Age: 69 Year
  Sex: Female
  Weight: 136 kg

DRUGS (25)
  1. MONTELUKAST SODIUM [Suspect]
     Active Substance: MONTELUKAST SODIUM
     Indication: Product used for unknown indication
     Route: 065
     Dates: start: 20250520
  2. DERMOL [Concomitant]
     Active Substance: BENZALKONIUM CHLORIDE\CHLORHEXIDINE HYDROCHLORIDE\ISOPROPYL MYRISTATE\PARAFFIN
     Indication: Ill-defined disorder
     Route: 065
     Dates: start: 20250404
  3. FUROSEMIDE [Concomitant]
     Active Substance: FUROSEMIDE
     Indication: Ill-defined disorder
     Route: 065
     Dates: start: 20250521
  4. FLUCLOXACILLIN [Concomitant]
     Active Substance: FLUCLOXACILLIN
     Indication: Ill-defined disorder
     Dosage: UNK, QID (ONE TO BE TAKEN FOUR TIMES DAILY)
     Route: 065
     Dates: start: 20250506, end: 20250513
  5. CARBOXYMETHYLCELLULOSE SODIUM\SILVER [Concomitant]
     Active Substance: CARBOXYMETHYLCELLULOSE SODIUM\SILVER
     Indication: Ill-defined disorder
     Route: 065
     Dates: start: 20250519, end: 20250520
  6. Urgotul [Concomitant]
     Indication: Ill-defined disorder
     Route: 065
     Dates: start: 20250519, end: 20250520
  7. DOXYCYCLINE [Concomitant]
     Active Substance: DOXYCYCLINE
     Indication: Ill-defined disorder
     Route: 065
     Dates: start: 20250521, end: 20250526
  8. Aquacel extra [Concomitant]
     Indication: Ill-defined disorder
     Route: 065
     Dates: start: 20250527, end: 20250528
  9. Flaminal forte [Concomitant]
     Indication: Ill-defined disorder
     Route: 065
     Dates: start: 20250606, end: 20250607
  10. ACETAZOLAMIDE [Concomitant]
     Active Substance: ACETAZOLAMIDE
     Indication: Ill-defined disorder
     Dosage: UNK, QD (ONE TO BE TAKEN DAILY)
     Route: 065
     Dates: start: 20240723
  11. AMITRIPTYLINE HYDROCHLORIDE [Concomitant]
     Active Substance: AMITRIPTYLINE HYDROCHLORIDE
     Indication: Ill-defined disorder
     Route: 065
     Dates: start: 20240723
  12. AMLODIPINE [Concomitant]
     Active Substance: AMLODIPINE BESYLATE
     Indication: Ill-defined disorder
     Dosage: UNK, QD (ONE TO BE TAKEN DAILY)
     Route: 065
     Dates: start: 20240723
  13. ATORVASTATIN [Concomitant]
     Active Substance: ATORVASTATIN
     Indication: Ill-defined disorder
     Dosage: UNK, QD (ONE TO BE TAKEN DAILY)
     Route: 065
     Dates: start: 20240723
  14. CODEINE PHOSPHATE [Concomitant]
     Active Substance: CODEINE PHOSPHATE
     Indication: Ill-defined disorder
     Dosage: UNK, QID (ONE OR TWO TO BE TAKEN FOUR TIMES DAILY WHEN R...)
     Route: 065
     Dates: start: 20240723
  15. Easyhaler [Concomitant]
     Indication: Ill-defined disorder
     Dosage: UNK, QID (INHALE ONE TO TWO DOSES UP TO FOUR TIMES DAILY)
     Dates: start: 20240723
  16. BUDESONIDE\FORMOTEROL FUMARATE [Concomitant]
     Active Substance: BUDESONIDE\FORMOTEROL FUMARATE
     Indication: Ill-defined disorder
     Dosage: 2 DOSAGE FORM, BID (TWO PUFFS TWICE DAILY)
     Route: 065
     Dates: start: 20240723
  17. IBUPROFEN [Concomitant]
     Active Substance: IBUPROFEN
     Indication: Ill-defined disorder
     Dosage: UNK, TID (APPLY THREE TIMES DAILY)
     Route: 065
     Dates: start: 20240723
  18. METFORMIN [Concomitant]
     Active Substance: METFORMIN HYDROCHLORIDE
     Indication: Ill-defined disorder
     Dosage: QD (THREE TO BE TAKEN DAILY)
     Route: 065
     Dates: start: 20240723
  19. OMEPRAZOLE [Concomitant]
     Active Substance: OMEPRAZOLE
     Indication: Ill-defined disorder
     Dosage: QD (ONE TO BE TAKEN DAILY)
     Route: 065
     Dates: start: 20240723
  20. ACETAMINOPHEN [Concomitant]
     Active Substance: ACETAMINOPHEN
     Indication: Ill-defined disorder
     Dosage: QID (TWO TO BE TAKEN FOUR TIMES DAILY WHEN REQUIRED)
     Route: 065
     Dates: start: 20240723
  21. PREGABALIN [Concomitant]
     Active Substance: PREGABALIN
     Indication: Ill-defined disorder
     Dosage: BID (ONE TO BE TAKEN TWICE DAILY)
     Route: 065
     Dates: start: 20240723
  22. SPIRIVA [Concomitant]
     Active Substance: TIOTROPIUM BROMIDE MONOHYDRATE
     Indication: Ill-defined disorder
     Dosage: 2 DOSAGE FORM, QD (TWO PUFFS ONCE DAILY)
     Route: 065
     Dates: start: 20240723
  23. MIRTAZAPINE [Concomitant]
     Active Substance: MIRTAZAPINE
     Indication: Ill-defined disorder
     Route: 065
     Dates: start: 20240807
  24. LISINOPRIL [Concomitant]
     Active Substance: LISINOPRIL
     Indication: Ill-defined disorder
     Dosage: QD (ONE TO BE TAKEN DAILY)
     Route: 065
     Dates: start: 20250106, end: 20250605
  25. BUPRENORPHINE [Concomitant]
     Active Substance: BUPRENORPHINE
     Indication: Ill-defined disorder
     Route: 065
     Dates: start: 20250203

REACTIONS (8)
  - Eye swelling [Recovering/Resolving]
  - Conjunctivitis [Recovering/Resolving]
  - Glossodynia [Recovered/Resolved]
  - Eye discharge [Recovering/Resolving]
  - Mydriasis [Recovered/Resolved]
  - Vision blurred [Recovered/Resolved]
  - Epistaxis [Recovered/Resolved with Sequelae]
  - Headache [Recovered/Resolved]

NARRATIVE: CASE EVENT DATE: 20250613
